APPROVED DRUG PRODUCT: CYTOXAN
Active Ingredient: CYCLOPHOSPHAMIDE
Strength: 25MG **Federal Register determination that product was not discontinued or withdrawn for safety or effectiveness reasons**
Dosage Form/Route: TABLET;ORAL
Application: N012141 | Product #002
Applicant: BAXTER HEALTHCARE CORP
Approved: Approved Prior to Jan 1, 1982 | RLD: Yes | RS: No | Type: RX